FAERS Safety Report 8274598 (Version 2)
Quarter: 2013Q4

REPORT INFORMATION
  Report Type: Report from Study
  Country: CA (occurrence: CA)
  Receive Date: 20111205
  Receipt Date: 20131107
  Transmission Date: 20140711
  Serious: Yes (Death, Other)
  Sender: FDA-Public Use
  Company Number: PHHY2011CA105307

PATIENT
  Age: 89 Year
  Sex: Female

DRUGS (4)
  1. ACLASTA [Suspect]
     Indication: OSTEOPOROSIS
     Dosage: UNK
     Route: 042
     Dates: start: 20100128
  2. ACLASTA [Suspect]
     Dosage: UNK
     Route: 042
     Dates: start: 20110221
  3. ACLASTA [Suspect]
     Dosage: UNK
     Route: 042
     Dates: start: 20120221
  4. ACLASTA [Suspect]
     Dosage: UNK
     Route: 042
     Dates: start: 20130125

REACTIONS (2)
  - Death [Fatal]
  - Dementia [Not Recovered/Not Resolved]
